FAERS Safety Report 20208876 (Version 2)
Quarter: 2022Q1

REPORT INFORMATION
  Report Type: Spontaneous
  Country: US (occurrence: US)
  Receive Date: 20211220
  Receipt Date: 20220117
  Transmission Date: 20220423
  Serious: No
  Sender: FDA-Public Use
  Company Number: US-009507513-2112USA003023

PATIENT
  Sex: Male
  Weight: 83.91 kg

DRUGS (5)
  1. PRINIVIL [Suspect]
     Active Substance: LISINOPRIL
     Indication: Ischaemic cardiomyopathy
     Dosage: 10 MILLIGRAM DAILY
     Route: 048
  2. PRINIVIL [Suspect]
     Active Substance: LISINOPRIL
     Indication: Congestive cardiomyopathy
  3. VYNDAMAX [Concomitant]
     Active Substance: TAFAMIDIS
  4. METOPROLOL [Concomitant]
     Active Substance: METOPROLOL
  5. WARFARIN [Concomitant]
     Active Substance: WARFARIN
     Indication: Anticoagulant therapy

REACTIONS (2)
  - Product use in unapproved indication [Unknown]
  - No adverse event [Unknown]
